FAERS Safety Report 22520613 (Version 1)
Quarter: 2023Q2

REPORT INFORMATION
  Report Type: Spontaneous
  Country: US (occurrence: US)
  Receive Date: 20230605
  Receipt Date: 20230605
  Transmission Date: 20230721
  Serious: Yes (Life-Threatening, Hospitalization, Other)
  Sender: FDA-Public Use
  Company Number: US-drreddys-LIT/USA/23/0166145

PATIENT
  Age: 56 Year
  Sex: Male

DRUGS (3)
  1. IBUPROFEN [Suspect]
     Active Substance: IBUPROFEN
     Indication: Back pain
     Dosage: 200-400 MG ONCE TO TWICE PER MONTH
  2. IBUPROFEN [Suspect]
     Active Substance: IBUPROFEN
     Dosage: 400-800MG IBUPROFEN SPORADICALLY OVER THE 2-3 WEEKS BEFORE THE VISIT TO THE EMERGENCY DEPARTMENT
  3. IBUPROFEN [Suspect]
     Active Substance: IBUPROFEN

REACTIONS (12)
  - Kounis syndrome [Recovering/Resolving]
  - Cardiac arrest [Recovering/Resolving]
  - Posturing [Recovering/Resolving]
  - Respiratory distress [Recovering/Resolving]
  - Pallor [Recovering/Resolving]
  - Hyperhidrosis [Recovering/Resolving]
  - Throat tightness [Recovering/Resolving]
  - Dysphagia [Recovering/Resolving]
  - Sinus congestion [Recovering/Resolving]
  - Anaphylactic reaction [Recovering/Resolving]
  - Angioedema [Recovering/Resolving]
  - Urticaria [Recovering/Resolving]
